FAERS Safety Report 7531799-3 (Version None)
Quarter: 2011Q2

REPORT INFORMATION
  Report Type: 
  Country: None (occurrence: None)
  Receive Date: 20110608
  Receipt Date: 20110603
  Transmission Date: 20111010
  Serious: No
  Sender: FDA-Public Use
  Company Number: US-TEVA-284894USA

PATIENT
  Sex: Female
  Weight: 77.18 kg

DRUGS (1)
  1. PLAN B ONE-STEP [Suspect]
     Indication: POST COITAL CONTRACEPTION
     Dosage: 1.5 MILLIGRAM;
     Route: 048
     Dates: start: 20110528, end: 20110528

REACTIONS (3)
  - VULVOVAGINAL SWELLING [None]
  - URINE LEUKOCYTE ESTERASE POSITIVE [None]
  - MENSTRUATION IRREGULAR [None]
